FAERS Safety Report 7357591-0 (Version None)
Quarter: 2011Q1

REPORT INFORMATION
  Report Type: 
  Country: None (occurrence: None)
  Receive Date: 20110317
  Receipt Date: 20110309
  Transmission Date: 20110831
  Serious: Yes (Death, Hospitalization, Other)
  Sender: FDA-Public Use
  Company Number: GB-SANOFI-AVENTIS-2010SA061087

PATIENT
  Age: 63 Year
  Sex: Female
  Weight: 75 kg

DRUGS (14)
  1. CORTICOSTEROID NOS [Concomitant]
     Indication: RHEUMATOID ARTHRITIS
     Route: 065
  2. LEVOTHYROXINE SODIUM [Concomitant]
     Route: 065
  3. CALCIUM [Concomitant]
     Route: 065
  4. SALAZOPYRIN EN [Concomitant]
     Indication: RHEUMATOID ARTHRITIS
     Route: 048
     Dates: start: 20050101
  5. ETORICOXIB [Concomitant]
     Indication: RHEUMATOID ARTHRITIS
     Route: 048
     Dates: start: 20070101
  6. ARAVA [Suspect]
     Indication: RHEUMATOID ARTHRITIS
     Dates: start: 20050101
  7. METHOTREXATE [Suspect]
     Indication: RHEUMATOID ARTHRITIS
     Route: 048
     Dates: start: 20050101
  8. LANSOPRAZOLE [Concomitant]
     Route: 048
     Dates: start: 20100401
  9. TIOTROPIUM [Concomitant]
     Route: 055
     Dates: start: 20050101
  10. ARAVA [Suspect]
     Dates: end: 20101001
  11. ALENDRONIC ACID [Concomitant]
     Indication: OSTEOPENIA
     Route: 048
     Dates: start: 20070101
  12. WARFARIN [Concomitant]
     Indication: PULMONARY EMBOLISM
     Route: 065
     Dates: start: 20100401
  13. COLOMYCIN [Concomitant]
     Route: 055
     Dates: start: 20090401
  14. SULPHASALAZINE [Concomitant]
     Indication: RHEUMATOID ARTHRITIS
     Route: 065

REACTIONS (7)
  - BRONCHIECTASIS [None]
  - PNEUMONITIS [None]
  - ORGANISING PNEUMONIA [None]
  - PULMONARY EMBOLISM [None]
  - PULMONARY FIBROSIS [None]
  - INTERSTITIAL LUNG DISEASE [None]
  - PNEUMONIA [None]
